FAERS Safety Report 9687184 (Version 3)
Quarter: 2014Q2

REPORT INFORMATION
  Report Type: Report from Study
  Country: BR (occurrence: BR)
  Receive Date: 20131113
  Receipt Date: 20140620
  Transmission Date: 20141212
  Serious: Yes (Hospitalization)
  Sender: FDA-Public Use
  Company Number: BR-US-EMD SERONO, INC.-7248264

PATIENT
  Age: 33 Year
  Sex: Female

DRUGS (7)
  1. REBIF [Suspect]
     Indication: MULTIPLE SCLEROSIS
     Dates: start: 20130404
  2. PARACETAMOL [Concomitant]
     Indication: PREMEDICATION
  3. AMITRIPTYLINE [Concomitant]
     Indication: DEPRESSION
  4. ETHINYLESTRADIOL W/GESTODENE [Concomitant]
     Indication: CONTRACEPTION
  5. SUMAX [Concomitant]
     Indication: MIGRAINE
  6. FLUOXETINE [Concomitant]
     Indication: PRODUCT USED FOR UNKNOWN INDICATION
  7. NEOSALDINA                         /00631701/ [Concomitant]
     Indication: PRODUCT USED FOR UNKNOWN INDICATION

REACTIONS (2)
  - Multiple sclerosis relapse [Recovered/Resolved]
  - Abdominal pain [Recovering/Resolving]
